FAERS Safety Report 22201687 (Version 1)
Quarter: 2023Q2

REPORT INFORMATION
  Report Type: Spontaneous
  Country: CN (occurrence: None)
  Receive Date: 20230412
  Receipt Date: 20230412
  Transmission Date: 20230721
  Serious: Yes (Other)
  Sender: FDA-Public Use
  Company Number: 2023A082904

PATIENT
  Age: 3589 Week
  Sex: Female
  Weight: 50.5 kg

DRUGS (1)
  1. TAGRISSO [Suspect]
     Active Substance: OSIMERTINIB
     Indication: Lung adenocarcinoma
     Route: 048
     Dates: start: 20220927

REACTIONS (4)
  - Dermatitis exfoliative generalised [Recovering/Resolving]
  - Oedema peripheral [Unknown]
  - Ingrowing nail [Unknown]
  - Skin fissures [Unknown]

NARRATIVE: CASE EVENT DATE: 20221115
